FAERS Safety Report 4350653-1 (Version None)
Quarter: 2004Q2

REPORT INFORMATION
  Report Type: 
  Country: None (occurrence: None)
  Receive Date: 20040429
  Receipt Date: 20040415
  Transmission Date: 20050107
  Serious: Yes (Death, Other)
  Sender: FDA-Public Use
  Company Number: A-CH2004-04203

PATIENT
  Age: 61 Year
  Sex: Male

DRUGS (14)
  1. TRACLEER [Suspect]
     Indication: PULMONARY HYPERTENSION
     Dosage: 62.5 MG, BID, ORAL
     Route: 048
     Dates: start: 20031111, end: 20031201
  2. DILZEM ^ELAN^ (DILTIAZEM HYDROCHLORIDE) [Concomitant]
  3. TOREM (TORASEMIDE) [Concomitant]
  4. CIBADREX (BENAZEPRIL HYDROCHLORIDE) [Concomitant]
  5. SERETIDE (SALMETEROL, FLUTICASONE PROPIONATE) [Concomitant]
  6. UNACID PD ORAL (SULTAMICILLIN TOSILATE) [Concomitant]
  7. KALINOR RETARD (POTASSIUM CHLORIDE) [Concomitant]
  8. JODID (POTASSIUM IODINE) [Concomitant]
  9. INSULIN HUMAN (INSULIN HUMAN) [Concomitant]
  10. FUROSEMIDE [Concomitant]
  11. MOSEGOR (PIZOTIFEN MALEATE) [Concomitant]
  12. MARCUMAR [Concomitant]
  13. REMEDACEN (DIHYDROCODEINE) [Concomitant]
  14. ZYLORIC ^GLAXO WELLCOME^ (ALLOPURINOL) [Concomitant]

REACTIONS (5)
  - ACUTE RESPIRATORY FAILURE [None]
  - CARDIAC ARREST [None]
  - CONVULSION [None]
  - CYANOSIS [None]
  - VENTRICULAR FIBRILLATION [None]
